FAERS Safety Report 4698338-6 (Version None)
Quarter: 2005Q2

REPORT INFORMATION
  Report Type: 
  Country: None (occurrence: None)
  Receive Date: 20050623
  Receipt Date: 20050613
  Transmission Date: 20051028
  Serious: Yes (Other)
  Sender: FDA-Public Use
  Company Number: TH-BRISTOL-MYERS SQUIBB COMPANY-13003439

PATIENT
  Age: 30 Year
  Sex: Male

DRUGS (3)
  1. REYATAZ [Suspect]
     Indication: HIV INFECTION
     Route: 048
     Dates: end: 20050501
  2. RITONAVIR [Suspect]
     Indication: HIV INFECTION
     Route: 048
     Dates: end: 20050501
  3. KALETRA [Concomitant]
     Dates: end: 20050401

REACTIONS (2)
  - EYELID OEDEMA [None]
  - GENERALISED OEDEMA [None]
